FAERS Safety Report 6512781-1 (Version None)
Quarter: 2009Q4

REPORT INFORMATION
  Report Type: 
  Country: None (occurrence: None)
  Receive Date: 20091217
  Receipt Date: 20091203
  Transmission Date: 20100525
  Serious: Yes (Other)
  Sender: FDA-Public Use
  Company Number: KV200900824

PATIENT
  Age: 30 Month
  Sex: Female

DRUGS (3)
  1. PRIMACARE (PRENATAL VITAMIN) TABLET [Suspect]
     Indication: PRENATAL CARE
     Dosage: ONE CAPSULE DAILY
  2. PRIMACARE (PRENATAL VITAMIN) TABLET [Suspect]
     Indication: VITAMIN SUPPLEMENTATION
     Dosage: ONE CAPSULE DAILY
  3. APAP (PARACETAMOL) [Concomitant]

REACTIONS (5)
  - AUTISM [None]
  - DEVELOPMENTAL DELAY [None]
  - MATERNAL DRUGS AFFECTING FOETUS [None]
  - PSYCHIATRIC SYMPTOM [None]
  - SPEECH DISORDER DEVELOPMENTAL [None]
